FAERS Safety Report 7581635-4 (Version None)
Quarter: 2011Q2

REPORT INFORMATION
  Report Type: 
  Country: None (occurrence: None)
  Receive Date: 20110629
  Receipt Date: 20110620
  Transmission Date: 20111010
  Serious: Yes (Hospitalization)
  Sender: FDA-Public Use
  Company Number: US-US-EMD SERONO, INC.-7063869

PATIENT
  Sex: Female
  Weight: 91 kg

DRUGS (6)
  1. GABAPENTIN [Concomitant]
     Indication: PAIN
  2. REBIF [Suspect]
     Indication: MULTIPLE SCLEROSIS
     Route: 058
     Dates: start: 20110523
  3. PROVIGIL [Concomitant]
     Indication: FATIGUE
  4. GALANTAMINE HYDROBROMIDE [Concomitant]
  5. REBIF [Suspect]
     Route: 058
     Dates: start: 20110605
  6. CARBAMAZEPINE [Concomitant]
     Indication: PAIN

REACTIONS (1)
  - LIVER DISORDER [None]
